FAERS Safety Report 13363948 (Version 1)
Quarter: 2017Q1

REPORT INFORMATION
  Report Type: Spontaneous
  Country: AT (occurrence: AT)
  Receive Date: 20170323
  Receipt Date: 20170323
  Transmission Date: 20170429
  Serious: Yes (Hospitalization)
  Sender: FDA-Public Use
  Company Number: AT-ABBVIE-17P-009-1911763-00

PATIENT

DRUGS (1)
  1. SYNAGIS [Suspect]
     Active Substance: PALIVIZUMAB
     Indication: ANTIVIRAL PROPHYLAXIS
     Dosage: 1 ADMINISTRATION
     Route: 030

REACTIONS (3)
  - Respiratory syncytial virus infection [Unknown]
  - Bronchitis [Unknown]
  - Bronchiolitis [Unknown]
